FAERS Safety Report 16029267 (Version 1)
Quarter: 2019Q1

REPORT INFORMATION
  Report Type: Spontaneous
  Country: US (occurrence: US)
  Receive Date: 20190205
  Receipt Date: 20190205
  Transmission Date: 20190418
  Serious: Yes (Death, Hospitalization)
  Sender: FDA-Public Use
  Company Number: None

PATIENT
  Sex: Female
  Weight: 81.38 kg

DRUGS (2)
  1. TAXOL [Suspect]
     Active Substance: PACLITAXEL
     Dates: end: 20190122
  2. CARBOPLATIN (241240) [Suspect]
     Active Substance: CARBOPLATIN
     Dates: end: 20190122

REACTIONS (6)
  - Ventricular hypokinesia [None]
  - Ischaemic stroke [None]
  - Coma [None]
  - Thrombocytopenia [None]
  - Encephalopathy [None]
  - Right ventricular systolic pressure increased [None]
